FAERS Safety Report 6470747-4 (Version None)
Quarter: 2009Q4

REPORT INFORMATION
  Report Type: 
  Country: None (occurrence: None)
  Receive Date: 20091203
  Receipt Date: 20091126
  Transmission Date: 20100525
  Serious: Yes (Other)
  Sender: FDA-Public Use
  Company Number: B0567973A

PATIENT
  Age: 67 Year
  Sex: Female

DRUGS (8)
  1. CLENIL MODULITE [Suspect]
     Indication: ASTHMA
     Route: 055
     Dates: start: 20090301, end: 20090301
  2. BECOTIDE [Concomitant]
  3. ALBUTEROL SULFATE AUTOHALER [Concomitant]
  4. FLUTICASONE PROPIONATE [Concomitant]
  5. FORMOTEROL FUMARATE [Concomitant]
  6. OMEPRAZOLE [Concomitant]
     Dosage: 20MG PER DAY
     Route: 048
  7. PREDNISOLONE [Concomitant]
     Route: 048
  8. CLARITHROMYCIN [Concomitant]
     Route: 048

REACTIONS (2)
  - OROPHARYNGEAL PAIN [None]
  - RASH [None]
